FAERS Safety Report 9929260 (Version 2)
Quarter: 2014Q1

REPORT INFORMATION
  Report Type: Spontaneous
  Country: JP (occurrence: JP)
  Receive Date: 20140227
  Receipt Date: 20140227
  Transmission Date: 20141002
  Serious: Yes (Death, Hospitalization)
  Sender: FDA-Public Use
  Company Number: JP-BAYER-2013-115213

PATIENT
  Age: 53 Year
  Sex: Male

DRUGS (10)
  1. STIVARGA [Suspect]
     Indication: RECTAL CANCER
     Dosage: 160 MG/DAY ON FOR 3 WEEKS AND OFF FOR 1 WEEK
     Route: 048
     Dates: start: 20130906, end: 20130914
  2. PRADAXA [Concomitant]
     Route: 048
  3. LASIX [Concomitant]
  4. ALDACTONE A [Concomitant]
     Route: 048
  5. OXYCONTIN [Concomitant]
     Route: 048
  6. MAGMITT [Concomitant]
     Route: 048
  7. NOVAMIN [Concomitant]
  8. AMOBAN [Concomitant]
     Route: 048
  9. CONSTAN [Concomitant]
     Route: 048
  10. CALONAL [Concomitant]

REACTIONS (2)
  - Hepatic function abnormal [Not Recovered/Not Resolved]
  - Jaundice cholestatic [Fatal]
